FAERS Safety Report 5337253-1 (Version None)
Quarter: 2007Q2

REPORT INFORMATION
  Report Type: 
  Country: None (occurrence: None)
  Receive Date: 20070529
  Receipt Date: 20070515
  Transmission Date: 20071010
  Serious: Yes (Other)
  Sender: FDA-Public Use
  Company Number: B0462428A

PATIENT
  Age: 24 Year
  Sex: Female

DRUGS (2)
  1. DEROXAT [Suspect]
     Indication: DEPRESSION
     Dates: start: 20070314
  2. NARAMIG [Concomitant]
     Indication: MIGRAINE
     Dates: start: 20070430

REACTIONS (12)
  - CHEST DISCOMFORT [None]
  - DIARRHOEA [None]
  - DYSPNOEA [None]
  - HYPERHIDROSIS [None]
  - INSOMNIA [None]
  - MYOCLONUS [None]
  - NAUSEA [None]
  - PRURITUS [None]
  - RESPIRATORY DISORDER [None]
  - SYNCOPE VASOVAGAL [None]
  - TACHYPNOEA [None]
  - TETANY [None]
